FAERS Safety Report 24222807 (Version 2)
Quarter: 2024Q4

REPORT INFORMATION
  Report Type: Spontaneous
  Country: CN (occurrence: CN)
  Receive Date: 20240819
  Receipt Date: 20241104
  Transmission Date: 20250115
  Serious: Yes (Hospitalization, Other)
  Sender: PFIZER
  Company Number: CN-PFIZER INC-PV202400104534

PATIENT
  Age: 60 Year
  Sex: Male

DRUGS (13)
  1. XYNTHA [Suspect]
     Active Substance: ANTIHEMOPHILIC FACTOR, HUMAN RECOMBINANT RESIDUES 743-1636 DELETED
     Indication: Factor VIII deficiency
     Dosage: 1000 IU, TIW
     Dates: start: 20230801
  2. XYNTHA [Suspect]
     Active Substance: ANTIHEMOPHILIC FACTOR, HUMAN RECOMBINANT RESIDUES 743-1636 DELETED
     Dosage: 1000 IU, TIW
     Route: 042
     Dates: start: 20230905
  3. XYNTHA [Suspect]
     Active Substance: ANTIHEMOPHILIC FACTOR, HUMAN RECOMBINANT RESIDUES 743-1636 DELETED
     Dosage: 1500IU, TIW
     Route: 042
     Dates: start: 20231010
  4. XYNTHA [Suspect]
     Active Substance: ANTIHEMOPHILIC FACTOR, HUMAN RECOMBINANT RESIDUES 743-1636 DELETED
     Dosage: 1500IU, TIW
     Route: 042
     Dates: start: 20231219
  5. XYNTHA [Suspect]
     Active Substance: ANTIHEMOPHILIC FACTOR, HUMAN RECOMBINANT RESIDUES 743-1636 DELETED
     Dosage: 1500IU, TIW
     Route: 042
     Dates: start: 20240130
  6. XYNTHA [Suspect]
     Active Substance: ANTIHEMOPHILIC FACTOR, HUMAN RECOMBINANT RESIDUES 743-1636 DELETED
     Dosage: 1500IU, TIW
     Route: 042
     Dates: start: 20240305
  7. XYNTHA [Suspect]
     Active Substance: ANTIHEMOPHILIC FACTOR, HUMAN RECOMBINANT RESIDUES 743-1636 DELETED
     Dosage: 1000 IU, TIW
     Route: 042
     Dates: start: 20240426
  8. XYNTHA [Suspect]
     Active Substance: ANTIHEMOPHILIC FACTOR, HUMAN RECOMBINANT RESIDUES 743-1636 DELETED
     Dosage: 500IU, TIW
     Route: 042
     Dates: start: 20240718
  9. XYNTHA [Suspect]
     Active Substance: ANTIHEMOPHILIC FACTOR, HUMAN RECOMBINANT RESIDUES 743-1636 DELETED
     Dosage: 500IU, TIW
     Route: 042
     Dates: start: 20240802
  10. XYNTHA [Suspect]
     Active Substance: ANTIHEMOPHILIC FACTOR, HUMAN RECOMBINANT RESIDUES 743-1636 DELETED
     Dosage: 500IU, ST
     Route: 040
     Dates: start: 20240807
  11. XYNTHA [Suspect]
     Active Substance: ANTIHEMOPHILIC FACTOR, HUMAN RECOMBINANT RESIDUES 743-1636 DELETED
     Dosage: 500 IU, 2X/DAY
     Route: 040
     Dates: start: 20240808
  12. XYNTHA [Suspect]
     Active Substance: ANTIHEMOPHILIC FACTOR, HUMAN RECOMBINANT RESIDUES 743-1636 DELETED
     Dosage: 1000IU, ST
     Route: 040
     Dates: start: 20240812
  13. XYNTHA [Suspect]
     Active Substance: ANTIHEMOPHILIC FACTOR, HUMAN RECOMBINANT RESIDUES 743-1636 DELETED
     Dosage: 500IU, TIW
     Route: 040
     Dates: start: 20240812

REACTIONS (15)
  - Chest pain [Recovering/Resolving]
  - Pneumothorax [Recovering/Resolving]
  - Gingival bleeding [Recovered/Resolved]
  - Tooth extraction [Unknown]
  - Haemoptysis [Recovering/Resolving]
  - Bronchitis chronic [Recovering/Resolving]
  - Emphysema [Recovering/Resolving]
  - Cystic lung disease [Recovering/Resolving]
  - Pleural effusion [Recovering/Resolving]
  - Hepatic lesion [Recovering/Resolving]
  - Cough [Unknown]
  - Productive cough [Unknown]
  - Musculoskeletal chest pain [Unknown]
  - Joint swelling [Unknown]
  - Arthralgia [Unknown]
